FAERS Safety Report 4735401-5 (Version None)
Quarter: 2005Q3

REPORT INFORMATION
  Report Type: 
  Country: None (occurrence: None)
  Receive Date: 20050805
  Receipt Date: 20050726
  Transmission Date: 20060218
  Serious: Yes (Other)
  Sender: FDA-Public Use
  Company Number: US-ROCHE-412121

PATIENT
  Age: 31 Year
  Sex: Female
  Weight: 76.7 kg

DRUGS (2)
  1. PEGASYS [Suspect]
     Indication: HEPATITIS B
     Dosage: REPORTED AS 180 MCG/0.5ML SYRING.
     Route: 058
     Dates: start: 20050415, end: 20050715
  2. MULTIVITAMIN NOS [Suspect]
     Route: 048

REACTIONS (3)
  - FACIAL PALSY [None]
  - HEADACHE [None]
  - HYPOAESTHESIA [None]
